FAERS Safety Report 6261464-4 (Version None)
Quarter: 2009Q3

REPORT INFORMATION
  Report Type: 
  Country: None (occurrence: None)
  Receive Date: 20090709
  Receipt Date: 20090703
  Transmission Date: 20100115
  Serious: Yes (Other)
  Sender: FDA-Public Use
  Company Number: BR-BAYER-200918626LA

PATIENT
  Age: 31 Year
  Sex: Female

DRUGS (1)
  1. YAZ [Suspect]
     Indication: ACNE
     Route: 048
     Dates: start: 20090701

REACTIONS (3)
  - DEPRESSED MOOD [None]
  - MALAISE [None]
  - SOMNOLENCE [None]
